FAERS Safety Report 14661403 (Version 3)
Quarter: 2018Q2

REPORT INFORMATION
  Report Type: Spontaneous
  Country: DE (occurrence: DE)
  Receive Date: 20180320
  Receipt Date: 20180511
  Transmission Date: 20180711
  Serious: No
  Sender: FDA-Public Use
  Company Number: DE-LPDUSPRD-20180315

PATIENT
  Age: 56 Year
  Sex: Female

DRUGS (3)
  1. DEKRISTOL [Concomitant]
     Active Substance: CHOLECALCIFEROL
     Dosage: 20.000/WEEKLY
     Route: 065
  2. FERINJECT [Suspect]
     Active Substance: FERRIC CARBOXYMALTOSE
     Dosage: 1000 MG
     Route: 041
     Dates: start: 201501
  3. CORTISON [Concomitant]
     Active Substance: CORTISONE ACETATE
     Dosage: UNKNOWN
     Route: 065

REACTIONS (8)
  - Tendon pain [Unknown]
  - Mobility decreased [Recovering/Resolving]
  - Osteopenia [Unknown]
  - Haemoglobin decreased [Unknown]
  - Arthralgia [Recovering/Resolving]
  - Ankle fracture [Not Recovered/Not Resolved]
  - Joint swelling [Recovering/Resolving]
  - Skin discolouration [Unknown]

NARRATIVE: CASE EVENT DATE: 201610
